FAERS Safety Report 6814181-3 (Version None)
Quarter: 2010Q3

REPORT INFORMATION
  Report Type: 
  Country: None (occurrence: None)
  Receive Date: 20100702
  Receipt Date: 20100623
  Transmission Date: 20110219
  Serious: Yes (Other)
  Sender: FDA-Public Use
  Company Number: US-JNJFOC-20100607612

PATIENT
  Sex: Female
  Weight: 94.8 kg

DRUGS (16)
  1. DURAGESIC-100 [Suspect]
     Indication: FIBROMYALGIA
     Route: 062
  2. DURAGESIC-100 [Suspect]
     Indication: THROMBOSIS
     Route: 062
  3. SAVELLA [Concomitant]
     Indication: FIBROMYALGIA
     Route: 048
  4. TOPIRAMATE [Concomitant]
     Indication: MIGRAINE
     Route: 048
  5. LORATADINE [Concomitant]
     Indication: MULTIPLE ALLERGIES
     Route: 048
  6. VENTOLIN [Concomitant]
     Indication: BRONCHITIS CHRONIC
     Dosage: 2 PUFFS/AS NEEDED
     Route: 048
  7. LIDODERM [Concomitant]
     Indication: FIBROMYALGIA
     Route: 062
  8. NAPROXEN [Concomitant]
     Indication: INFLAMMATION
     Route: 048
  9. OXYCODONE HCL [Concomitant]
     Indication: PAIN
     Dosage: 10/650 MG
     Route: 048
  10. DIAZEPAM [Concomitant]
     Indication: PAIN
     Route: 048
  11. DIAZEPAM [Concomitant]
     Indication: ANXIETY
     Route: 048
  12. TIZANIDINE HCL [Concomitant]
     Indication: FIBROMYALGIA
     Route: 048
  13. TIZANIDINE HCL [Concomitant]
     Indication: MUSCLE RELAXANT THERAPY
     Route: 048
  14. MIRAPEX [Concomitant]
     Indication: RESTLESS LEGS SYNDROME
     Route: 048
  15. AMITRIPTYLINE [Concomitant]
     Indication: INSOMNIA
     Route: 048
  16. KLONOPIN [Concomitant]
     Indication: ANXIETY
     Route: 048

REACTIONS (3)
  - ABNORMAL LOSS OF WEIGHT [None]
  - DRUG INEFFECTIVE [None]
  - WRONG TECHNIQUE IN DRUG USAGE PROCESS [None]
